FAERS Safety Report 7509643-X (Version None)
Quarter: 2011Q2

REPORT INFORMATION
  Report Type: 
  Country: None (occurrence: None)
  Receive Date: 20110527
  Receipt Date: 20110517
  Transmission Date: 20111010
  Serious: Yes (Hospitalization)
  Sender: FDA-Public Use
  Company Number: CA-JNJFOC-20110503953

PATIENT
  Sex: Male
  Weight: 84 kg

DRUGS (21)
  1. EFFEXOR [Concomitant]
     Indication: HYPERHIDROSIS
     Route: 048
     Dates: start: 20091027
  2. EFFEXOR [Concomitant]
     Route: 048
     Dates: start: 20091027
  3. ABIRATERONE ACETATE [Suspect]
     Route: 048
     Dates: start: 20080902, end: 20110124
  4. PREDNISONE [Suspect]
     Indication: PROSTATE CANCER METASTATIC
     Route: 048
     Dates: start: 20080902
  5. ALBUTEROL [Concomitant]
     Indication: ASTHMA
     Route: 055
     Dates: start: 20080920
  6. FOSAMAX [Concomitant]
     Indication: BONE DENSITY ABNORMAL
     Route: 048
     Dates: start: 20101007
  7. PREDNISONE [Suspect]
     Route: 048
     Dates: start: 20110125
  8. VITAMIN B-12 [Concomitant]
     Indication: VITAMIN B12 DEFICIENCY
     Route: 030
     Dates: start: 19990101
  9. MORPHINE [Concomitant]
     Indication: CANCER PAIN
     Route: 048
     Dates: start: 20101004
  10. CALCIUM CARBONATE [Concomitant]
     Indication: PROPHYLAXIS
     Route: 048
     Dates: start: 20080610
  11. NITROGLYCERIN SPRAY [Concomitant]
     Indication: ANGINA PECTORIS
     Route: 055
     Dates: start: 20050101
  12. STATEX [Concomitant]
     Route: 048
     Dates: start: 20090212
  13. ABIRATERONE ACETATE [Suspect]
     Indication: PROSTATE CANCER METASTATIC
     Route: 048
     Dates: start: 20110125
  14. VITAMIN D [Concomitant]
     Indication: PROPHYLAXIS
     Route: 048
     Dates: start: 20080610
  15. DILTIAZEM [Concomitant]
     Indication: ANGINA PECTORIS
     Route: 048
     Dates: start: 20050107
  16. MELOXICAM [Concomitant]
     Indication: ARTHRITIS
     Route: 048
     Dates: start: 20071026
  17. FLUTICASONE PROPIONATE [Concomitant]
     Indication: ASTHMA
     Route: 055
     Dates: start: 20080920
  18. LUPRON [Concomitant]
     Indication: PROSTATE CANCER
     Route: 030
     Dates: start: 20080902
  19. NITROGLYCERIN [Concomitant]
     Indication: ANGINA PECTORIS
     Route: 062
     Dates: start: 20050101
  20. STATEX [Concomitant]
     Indication: CANCER PAIN
     Route: 048
     Dates: start: 20100301
  21. FLOMAX [Concomitant]
     Indication: NOCTURIA
     Route: 048
     Dates: start: 20090414

REACTIONS (1)
  - CEREBRAL ISCHAEMIA [None]
